FAERS Safety Report 5102962-6 (Version None)
Quarter: 2006Q3

REPORT INFORMATION
  Report Type: 
  Country: None (occurrence: None)
  Receive Date: 20060907
  Receipt Date: 20060818
  Transmission Date: 20061208
  Serious: Yes (Hospitalization)
  Sender: FDA-Public Use
  Company Number: ES200608004146

PATIENT
  Age: 65 Year
  Sex: Female

DRUGS (1)
  1. FORTEO [Suspect]
     Indication: OSTEOPOROSIS
     Dosage: 20UG, DAILY (1/D), SUBCUTANEOUS
     Route: 058
     Dates: start: 20051101

REACTIONS (2)
  - FALL [None]
  - HUMERUS FRACTURE [None]
